FAERS Safety Report 8343687-3 (Version None)
Quarter: 2012Q2

REPORT INFORMATION
  Report Type: 
  Country: None (occurrence: None)
  Receive Date: 20120508
  Receipt Date: 20100922
  Transmission Date: 20120825
  Serious: Yes (Hospitalization, Other)
  Sender: FDA-Public Use
  Company Number: US-BAYER-200942183NA

PATIENT
  Age: 33 Year
  Sex: Female
  Weight: 96 kg

DRUGS (8)
  1. YAZ [Suspect]
     Indication: CONTRACEPTION
     Dosage: 3 MG (DAILY DOSE), QD, ORAL
     Route: 048
     Dates: start: 20070307, end: 20090301
  2. YAZ [Suspect]
     Indication: PREMENSTRUAL SYNDROME
  3. MULTI-VITAMIN [Concomitant]
     Route: 065
     Dates: start: 20071122
  4. TRAZODONE HCL [Concomitant]
     Indication: SLEEP DISORDER THERAPY
     Route: 065
     Dates: start: 20070508
  5. TYLENOL (CAPLET) [Concomitant]
     Indication: ANALGESIC THERAPY
     Dosage: 325 MG/PM
     Route: 065
     Dates: start: 20071127
  6. TRI-SPRINTEC [Concomitant]
  7. FEXOFENADINE [Concomitant]
     Dosage: 24-APR-2007
     Route: 065
  8. IRON [Concomitant]
     Indication: ANAEMIA

REACTIONS (7)
  - CHOLELITHIASIS [None]
  - PANCREATITIS ACUTE [None]
  - VOMITING [None]
  - DYSPEPSIA [None]
  - CHOLECYSTITIS [None]
  - GASTROOESOPHAGEAL REFLUX DISEASE [None]
  - ABDOMINAL PAIN [None]
